FAERS Safety Report 5562924-1 (Version None)
Quarter: 2007Q4

REPORT INFORMATION
  Report Type: 
  Country: None (occurrence: None)
  Receive Date: 20071211
  Receipt Date: 20071211
  Transmission Date: 20080405
  Serious: Yes (Other)
  Sender: FDA-Public Use
  Company Number: None

PATIENT
  Age: 62 Year
  Sex: Female
  Weight: 108.8633 kg

DRUGS (1)
  1. TRICOR [Suspect]

REACTIONS (2)
  - BLOOD GLUCOSE DECREASED [None]
  - HEADACHE [None]
